FAERS Safety Report 13245191 (Version 1)
Quarter: 2017Q1

REPORT INFORMATION
  Report Type: Spontaneous
  Country: GB (occurrence: GB)
  Receive Date: 20170217
  Receipt Date: 20170217
  Transmission Date: 20170428
  Serious: Yes (Other)
  Sender: FDA-Public Use
  Company Number: GB-SA-2017SA022909

PATIENT
  Age: 55 Year
  Sex: Male

DRUGS (1)
  1. LEMTRADA [Suspect]
     Active Substance: ALEMTUZUMAB
     Indication: MULTIPLE SCLEROSIS RELAPSE
     Route: 042
     Dates: start: 201607

REACTIONS (4)
  - Gout [Unknown]
  - Hemiparesis [Unknown]
  - Aphasia [Unknown]
  - Dyspraxia [Unknown]

NARRATIVE: CASE EVENT DATE: 201607
